FAERS Safety Report 9702756 (Version 1)
Quarter: 2013Q4

REPORT INFORMATION
  Report Type: Spontaneous
  Country: TR (occurrence: None)
  Receive Date: 20131120
  Receipt Date: 20131120
  Transmission Date: 20140711
  Serious: Yes (Hospitalization)
  Sender: FDA-Public Use
  Company Number: SYM-2013-12786

PATIENT
  Age: 30 Year
  Sex: Female

DRUGS (1)
  1. ZYBAN [Suspect]
     Indication: SMOKING CESSATION THERAPY
     Route: 048
     Dates: start: 20131018, end: 20131028

REACTIONS (2)
  - Swelling [None]
  - Erythema [None]
